FAERS Safety Report 17870556 (Version 4)
Quarter: 2020Q4

REPORT INFORMATION
  Report Type: Spontaneous
  Country: US (occurrence: US)
  Receive Date: 20200608
  Receipt Date: 20201125
  Transmission Date: 20210113
  Serious: No
  Sender: FDA-Public Use
  Company Number: US-PFIZER INC-2020221652

PATIENT
  Age: 71 Year
  Sex: Female
  Weight: 85.73 kg

DRUGS (5)
  1. CHANTIX [Suspect]
     Active Substance: VARENICLINE TARTRATE
     Dosage: 1 MG, TAKE 1 TABLET ORALLY ONCE PER DAY AS DIRECTED FOR 1 MONTH
     Route: 048
     Dates: start: 20200610
  2. PROZAC [Concomitant]
     Active Substance: FLUOXETINE HYDROCHLORIDE
     Dosage: UNK
  3. CHANTIX [Suspect]
     Active Substance: VARENICLINE TARTRATE
     Indication: SMOKING CESSATION THERAPY
     Dosage: 0.5 MG, TAKE 1 TABLET ORALLY ONCE PER DAY AS DIRECTED FOR 1 MONTH
     Route: 048
     Dates: start: 20200610
  4. CHANTIX [Suspect]
     Active Substance: VARENICLINE TARTRATE
     Dosage: 1 MG, 1X/DAY (1 TABLET ORALLY ONCE PER DAY AS DIRECTED. FOR 1 MONTH)
     Route: 048
  5. CYMBALTA [Concomitant]
     Active Substance: DULOXETINE HYDROCHLORIDE
     Dosage: UNK

REACTIONS (5)
  - Depression [Unknown]
  - Body height decreased [Unknown]
  - Weight decreased [Unknown]
  - Serotonin deficiency [Unknown]
  - Off label use [Unknown]

NARRATIVE: CASE EVENT DATE: 20200610
